FAERS Safety Report 7295232-1 (Version None)
Quarter: 2011Q1

REPORT INFORMATION
  Report Type: 
  Country: None (occurrence: None)
  Receive Date: 20110216
  Receipt Date: 20101229
  Transmission Date: 20110831
  Serious: No
  Sender: FDA-Public Use
  Company Number: A0902031A

PATIENT
  Age: 51 Year
  Sex: Male

DRUGS (3)
  1. VOTRIENT [Suspect]
     Dosage: 800MG THREE TIMES PER DAY
     Route: 048
     Dates: start: 20101118, end: 20101201
  2. NEXAVAR [Concomitant]
  3. UNKNOWN MEDICATION [Concomitant]

REACTIONS (2)
  - PRURITUS [None]
  - NAUSEA [None]
